FAERS Safety Report 17234264 (Version 1)
Quarter: 2020Q1

REPORT INFORMATION
  Report Type: Spontaneous
  Country: US (occurrence: US)
  Receive Date: 20200106
  Receipt Date: 20200106
  Transmission Date: 20200409
  Serious: No
  Sender: FDA-Public Use
  Company Number: US-UCBSA-2014012820

PATIENT
  Age: 46 Year
  Sex: Female

DRUGS (2)
  1. CIMZIA [Suspect]
     Active Substance: CERTOLIZUMAB PEGOL
     Indication: RHEUMATOID ARTHRITIS
     Dosage: INDUCTION DOSE
     Dates: start: 201403, end: 2014
  2. CIMZIA [Suspect]
     Active Substance: CERTOLIZUMAB PEGOL
     Dosage: 200 MG, 2X/2 WEEKS
     Dates: start: 2014

REACTIONS (3)
  - Palpitations [Recovered/Resolved]
  - Abdominal pain upper [Recovered/Resolved]
  - Ventricular extrasystoles [Recovered/Resolved]

NARRATIVE: CASE EVENT DATE: 201403
